FAERS Safety Report 6922128-4 (Version None)
Quarter: 2010Q3

REPORT INFORMATION
  Report Type: 
  Country: None (occurrence: None)
  Receive Date: 20100812
  Receipt Date: 20100810
  Transmission Date: 20110219
  Serious: Yes (Hospitalization)
  Sender: FDA-Public Use
  Company Number: US-GILEAD-2010-0030958

PATIENT
  Age: 76 Year
  Sex: Female
  Weight: 55.842 kg

DRUGS (14)
  1. LETAIRIS [Suspect]
     Indication: PULMONARY ARTERIAL HYPERTENSION
     Route: 048
     Dates: start: 20080919
  2. REVATIO [Concomitant]
  3. TYVASO [Concomitant]
  4. ADCIRCA [Concomitant]
  5. TORSEMIDE [Concomitant]
  6. SPIRONOLACTONE [Concomitant]
  7. XALATAN [Concomitant]
  8. LEVOXYL [Concomitant]
  9. CALTRATE [Concomitant]
  10. MAG-OX [Concomitant]
  11. MULTI-VITAMIN [Concomitant]
  12. FEOSOL [Concomitant]
  13. ANIMI-3 [Concomitant]
  14. ASCORBIC ACID [Concomitant]

REACTIONS (1)
  - PERICARDIAL EFFUSION [None]
